FAERS Safety Report 15149186 (Version 1)
Quarter: 2018Q3

REPORT INFORMATION
  Report Type: Spontaneous
  Country: IT (occurrence: IT)
  Receive Date: 20180716
  Receipt Date: 20180716
  Transmission Date: 20181010
  Serious: Yes (Other)
  Sender: FDA-Public Use
  Company Number: IT-BAXTER-2018BAX019057

PATIENT
  Age: 56 Year
  Sex: Female

DRUGS (2)
  1. MYOCET [Suspect]
     Active Substance: DOXORUBICIN
     Indication: METASTASES TO BREAST
     Dosage: FOR 13 CYCLES
     Route: 042
  2. ENDOXAN BAXTER [Suspect]
     Active Substance: CYCLOPHOSPHAMIDE
     Indication: METASTASES TO BREAST
     Dosage: FOR 13 CYCLES
     Route: 042

REACTIONS (5)
  - Asthenia [Unknown]
  - Toxicity to various agents [Unknown]
  - Mucosal inflammation [Unknown]
  - Nausea [Unknown]
  - Alopecia [Unknown]
